FAERS Safety Report 9919606 (Version 3)
Quarter: 2014Q1

REPORT INFORMATION
  Report Type: Spontaneous
  Country: CA (occurrence: CA)
  Receive Date: 20140224
  Receipt Date: 20140307
  Transmission Date: 20141002
  Serious: Yes (Hospitalization)
  Sender: FDA-Public Use
  Company Number: CA-GLAXOSMITHKLINE-A1062046A

PATIENT
  Age: 52 Year
  Sex: Male
  Weight: 87 kg

DRUGS (2)
  1. BENLYSTA [Suspect]
     Indication: SYSTEMIC LUPUS ERYTHEMATOSUS
     Dosage: 920MG SEE DOSAGE TEXT
     Route: 042
     Dates: start: 20130318
  2. PREDNISONE [Concomitant]

REACTIONS (5)
  - Suicidal ideation [Recovered/Resolved]
  - Impulsive behaviour [Recovering/Resolving]
  - Anxiety [Unknown]
  - Aggression [Unknown]
  - Loss of employment [Unknown]
